FAERS Safety Report 9369686 (Version 1)
Quarter: 2013Q2

REPORT INFORMATION
  Report Type: Report from Study
  Country: DE (occurrence: DE)
  Receive Date: 20130626
  Receipt Date: 20130626
  Transmission Date: 20140414
  Serious: Yes (Hospitalization)
  Sender: FDA-Public Use
  Company Number: DE-FRI-1000045384

PATIENT
  Sex: Male

DRUGS (5)
  1. MEMANTINE (OPEN-LABEL) [Suspect]
     Indication: DEMENTIA ALZHEIMER^S TYPE
     Dosage: 20 MG
     Route: 048
     Dates: start: 20120613, end: 201206
  2. MEMANTINE (OPEN-LABEL) [Suspect]
     Dosage: 5 MG
     Route: 048
     Dates: start: 20120523, end: 20120529
  3. MEMANTINE (OPEN-LABEL) [Suspect]
     Dosage: 10 MG
     Route: 048
     Dates: start: 20120530, end: 20120605
  4. MEMANTINE (OPEN-LABEL) [Suspect]
     Dosage: 15 MG
     Route: 048
     Dates: start: 20120606, end: 20120612
  5. GLIBENCLAMIDE [Concomitant]
     Indication: DIABETES MELLITUS
     Dosage: 1 DOSAGE FORMS

REACTIONS (2)
  - Grand mal convulsion [Recovered/Resolved]
  - Postictal state [Recovered/Resolved]
